FAERS Safety Report 4543933-8 (Version None)
Quarter: 2005Q1

REPORT INFORMATION
  Report Type: 
  Country: None (occurrence: None)
  Receive Date: 20050104
  Receipt Date: 20041223
  Transmission Date: 20050727
  Serious: Yes (Other)
  Sender: FDA-Public Use
  Company Number: US-JNJFOC-20041101313

PATIENT
  Sex: Female
  Weight: 61.24 kg

DRUGS (7)
  1. ELMIRON [Suspect]
     Indication: CYSTITIS INTERSTITIAL
     Route: 049
  2. ZOCOR [Concomitant]
  3. PYRIDIUM [Concomitant]
     Indication: CYSTITIS INTERSTITIAL
  4. ACICHOL [Concomitant]
  5. UROCIT K [Concomitant]
     Indication: CYSTITIS INTERSTITIAL
  6. ZANTAC [Concomitant]
  7. ELAVIL [Concomitant]
     Indication: CYSTITIS INTERSTITIAL

REACTIONS (2)
  - ABDOMINAL DISCOMFORT [None]
  - LARGE INTESTINAL ULCER [None]
